FAERS Safety Report 14950488 (Version 1)
Quarter: 2018Q2

REPORT INFORMATION
  Report Type: Spontaneous
  Country: DE (occurrence: DE)
  Receive Date: 20180530
  Receipt Date: 20180530
  Transmission Date: 20180711
  Serious: Yes (Other)
  Sender: FDA-Public Use
  Company Number: DE-ASTRAZENECA-2018SE68230

PATIENT
  Age: 1 Day
  Sex: Female
  Weight: 2.3 kg

DRUGS (3)
  1. MINPROSTIN [Concomitant]
     Active Substance: DINOPROSTONE
     Indication: LABOUR INDUCTION
     Dosage: 3 [MG/D ]
     Route: 064
     Dates: start: 20170709, end: 20170709
  2. QUILONUM [Suspect]
     Active Substance: LITHIUM CARBONATE
     Indication: BIPOLAR DISORDER
     Dosage: 1250 [MG/D ]/ VARYING DOSAGES BETWEEN 450 AND 1250MG/D
     Route: 064
     Dates: start: 20161010, end: 20170710
  3. SEROQUEL [Suspect]
     Active Substance: QUETIAPINE FUMARATE
     Indication: BIPOLAR DISORDER
     Dosage: 50 [MG/D ]/ DOSAGE BETWEEN 25 AND 50 MG/D
     Route: 064
     Dates: start: 20161010, end: 20170710

REACTIONS (2)
  - Hypoglycaemia neonatal [Recovered/Resolved]
  - Small for dates baby [Unknown]

NARRATIVE: CASE EVENT DATE: 20170710
